FAERS Safety Report 7465002-X (Version None)
Quarter: 2011Q2

REPORT INFORMATION
  Report Type: 
  Country: None (occurrence: None)
  Receive Date: 20110428
  Receipt Date: 20110413
  Transmission Date: 20111010
  Serious: No
  Sender: FDA-Public Use
  Company Number: 2011MA003870

PATIENT
  Age: 51 Year
  Sex: Female

DRUGS (2)
  1. CYCLOPHOSPHAMIDE [Concomitant]
  2. FLUDARABINE PHOSPHATE [Suspect]
     Indication: B-CELL LYMPHOMA

REACTIONS (4)
  - ACUTE MYELOID LEUKAEMIA [None]
  - MYELODYSPLASTIC SYNDROME [None]
  - DYSPLASIA [None]
  - REFRACTORY ANAEMIA [None]
